FAERS Safety Report 8873455 (Version 2)
Quarter: 2012Q4

REPORT INFORMATION
  Report Type: 
  Country: JP (occurrence: JP)
  Receive Date: 20121030
  Receipt Date: 20121031
  Transmission Date: 20130627
  Serious: Yes (Life-Threatening, Other)
  Sender: FDA-Public Use
  Company Number: JP-ASTRAZENECA-2012SE80441

PATIENT
  Age: 62 Year
  Sex: Male

DRUGS (4)
  1. ANAPEINE [Suspect]
     Indication: EPIDURAL ANAESTHESIA
     Dosage: 2 mg/ml
     Route: 008
  2. REMIFENTANIL HYDROCHLORIDE [Suspect]
     Indication: MAINTENANCE OF ANAESTHESIA
     Dosage: Dose unknown
     Route: 065
  3. SEVOFLURANE [Suspect]
     Indication: MAINTENANCE OF ANAESTHESIA
     Dosage: Dose unknown
     Route: 065
  4. PROPOFOL [Suspect]
     Indication: GENERAL ANAESTHESIA
     Dosage: Dose unknown

REACTIONS (2)
  - Ventricular tachycardia [Recovered/Resolved]
  - Brugada syndrome [Recovered/Resolved]
